FAERS Safety Report 10172602 (Version 2)
Quarter: 2014Q2

REPORT INFORMATION
  Report Type: Spontaneous
  Country: US (occurrence: US)
  Receive Date: 20140515
  Receipt Date: 20140515
  Transmission Date: 20141212
  Serious: Yes (Hospitalization, Other)
  Sender: FDA-Public Use
  Company Number: US-ASTRAZENECA-2009UW01435

PATIENT
  Age: 65 Year
  Sex: Female
  Weight: 107.5 kg

DRUGS (9)
  1. CRESTOR [Suspect]
     Indication: BLOOD CHOLESTEROL INCREASED
     Route: 048
  2. HCTZ [Concomitant]
  3. POTASSIUM [Concomitant]
  4. LISINOPRIL [Concomitant]
  5. MAGNESIUM [Concomitant]
  6. VIT D [Concomitant]
  7. VITAMIN B COMPLEX [Concomitant]
  8. BABY ASA [Concomitant]
  9. METAMUCIL [Concomitant]

REACTIONS (5)
  - Haemorrhage [Unknown]
  - Haemolytic anaemia [Unknown]
  - Contusion [Unknown]
  - Abdominal pain [Unknown]
  - Intentional product misuse [Unknown]
